FAERS Safety Report 24660944 (Version 1)
Quarter: 2024Q4

REPORT INFORMATION
  Report Type: Spontaneous
  Country: US (occurrence: US)
  Receive Date: 20241125
  Receipt Date: 20241125
  Transmission Date: 20250115
  Serious: No
  Sender: AVADEL CNS PHARMACEUTICALS, LLC
  Company Number: US-AVADEL CNS PHARMACEUTICALS, LLC-2024AVA02050

PATIENT
  Age: 53 Year
  Sex: Female
  Weight: 68.027 kg

DRUGS (6)
  1. LUMRYZ [Suspect]
     Active Substance: SODIUM OXYBATE
     Indication: Narcolepsy
     Dosage: 7.5 G, ONCE NIGHTLY AT BEDTIME
     Dates: start: 202410
  2. VORTIOXETINE [Concomitant]
     Active Substance: VORTIOXETINE
  3. ZEPBOUND [Concomitant]
     Active Substance: TIRZEPATIDE
  4. NIFEDIPINE [Concomitant]
     Active Substance: NIFEDIPINE
  5. WELLBUTRIN XL [Concomitant]
     Active Substance: BUPROPION HYDROCHLORIDE
  6. ARMODAFINIL [Concomitant]
     Active Substance: ARMODAFINIL

REACTIONS (3)
  - Fatigue [Not Recovered/Not Resolved]
  - Performance status decreased [Not Recovered/Not Resolved]
  - Nausea [Not Recovered/Not Resolved]

NARRATIVE: CASE EVENT DATE: 20241001
